FAERS Safety Report 10629836 (Version 1)
Quarter: 2014Q4

REPORT INFORMATION
  Report Type: Spontaneous
  Country: US (occurrence: US)
  Receive Date: 20141205
  Receipt Date: 20141205
  Transmission Date: 20150529
  Serious: No
  Sender: FDA-Public Use
  Company Number: US-BRISTOL-MYERS SQUIBB COMPANY-20804217

PATIENT
  Age: 64 Year
  Sex: Male
  Weight: 94.33 kg

DRUGS (2)
  1. BYETTA [Suspect]
     Active Substance: EXENATIDE
     Indication: TYPE 2 DIABETES MELLITUS
     Dates: start: 20140515
  2. HUMULIN NOS [Suspect]
     Active Substance: INSULIN HUMAN
     Dosage: 1DF:70/30 UNIT NOS

REACTIONS (1)
  - Blood glucose increased [Not Recovered/Not Resolved]

NARRATIVE: CASE EVENT DATE: 201405
